FAERS Safety Report 8486962-4 (Version None)
Quarter: 2012Q3

REPORT INFORMATION
  Report Type: 
  Country: None (occurrence: None)
  Receive Date: 20120704
  Receipt Date: 20120625
  Transmission Date: 20120928
  Serious: Yes (Other)
  Sender: FDA-Public Use
  Company Number: US-RB-041918-12

PATIENT
  Sex: Female

DRUGS (1)
  1. SUBOXONE [Suspect]
     Indication: DRUG DEPENDENCE
     Dosage: UNKNOWN DOSE VIA SEMEN

REACTIONS (2)
  - ABORTION SPONTANEOUS [None]
  - EXPOSURE VIA SEMEN [None]
